FAERS Safety Report 25755638 (Version 3)
Quarter: 2025Q4

REPORT INFORMATION
  Report Type: Spontaneous
  Country: US (occurrence: US)
  Receive Date: 20250903
  Receipt Date: 20251120
  Transmission Date: 20260117
  Serious: No
  Sender: BIOGEN
  Company Number: US-BIOGEN-2025BI01322288

PATIENT
  Sex: Female

DRUGS (2)
  1. VUMERITY [Suspect]
     Active Substance: DIROXIMEL FUMARATE
     Indication: Multiple sclerosis
     Dates: start: 20240703, end: 20240709
  2. VUMERITY [Suspect]
     Active Substance: DIROXIMEL FUMARATE
     Dates: start: 20240710, end: 20250825

REACTIONS (11)
  - Musculoskeletal disorder [Not Recovered/Not Resolved]
  - Headache [Unknown]
  - Insomnia [Not Recovered/Not Resolved]
  - Pain [Unknown]
  - Lymphopenia [Not Recovered/Not Resolved]
  - Hypersomnia [Unknown]
  - Abdominal discomfort [Unknown]
  - Leukopenia [Unknown]
  - Cystitis [Unknown]
  - Gait deviation [Unknown]
  - Decreased immune responsiveness [Unknown]

NARRATIVE: CASE EVENT DATE: 20250801
